FAERS Safety Report 4574815-3 (Version None)
Quarter: 2005Q1

REPORT INFORMATION
  Report Type: 
  Country: None (occurrence: None)
  Receive Date: 20050208
  Receipt Date: 20040707
  Transmission Date: 20050727
  Serious: No
  Sender: FDA-Public Use
  Company Number: US-GLAXOSMITHKLINE-A0517260A

PATIENT
  Age: 27 Year
  Sex: Female

DRUGS (2)
  1. PAXIL CR [Suspect]
     Indication: PANIC DISORDER
     Dosage: 12.5MG PER DAY
     Route: 048
     Dates: end: 20040702
  2. KLONOPIN [Concomitant]

REACTIONS (4)
  - DIZZINESS [None]
  - PAIN [None]
  - PARAESTHESIA [None]
  - TINNITUS [None]
